FAERS Safety Report 9034611 (Version 1)
Quarter: 2013Q1

REPORT INFORMATION
  Report Type: Spontaneous
  Country: ES (occurrence: None)
  Receive Date: 20130118
  Receipt Date: 20130118
  Transmission Date: 20140127
  Serious: Yes (Congenital Anomaly)
  Sender: FDA-Public Use
  Company Number: 2013-00251

PATIENT
  Sex: Male

DRUGS (2)
  1. FINASTERIDE [Suspect]
     Indication: PROSTATITIS
     Route: 050
  2. LEVOTHYROXINE SODIUM STAT RX (LEVOTHYROXINE SODIUM) [Concomitant]

REACTIONS (8)
  - Congenital ectopic bladder [None]
  - Umbilical cord abnormality [None]
  - Micropenis [None]
  - Epispadias [None]
  - Cryptorchism [None]
  - Congenital inguinal hernia [None]
  - Symphysiolysis [None]
  - Exposure via father [None]
